FAERS Safety Report 5424152-X (Version None)
Quarter: 2007Q3

REPORT INFORMATION
  Report Type: 
  Country: None (occurrence: None)
  Receive Date: 20070823
  Receipt Date: 20070816
  Transmission Date: 20080115
  Serious: Yes (Hospitalization, Other)
  Sender: FDA-Public Use
  Company Number: GB-PFIZER INC-2007050264

PATIENT
  Age: 36 Year
  Sex: Male
  Weight: 90 kg

DRUGS (20)
  1. SOMATROPIN [Suspect]
     Indication: OFF LABEL USE
     Dosage: DAILY DOSE:4I.U.
  2. SOMATROPIN [Suspect]
     Dosage: DAILY DOSE:8I.U.
  3. ANASTROZOLE [Concomitant]
     Dosage: DAILY DOSE:1MG
  4. GONADOTROPIN CHORIONIC [Concomitant]
     Dosage: DAILY DOSE:2500I.U.
  5. GONADOTROPIN CHORIONIC [Concomitant]
     Dosage: DAILY DOSE:2500MCG
  6. CLENBUTEROL HYDROCHLORIDE [Concomitant]
     Dosage: DAILY DOSE:240MCG
  7. DECA-DURABOLIN [Concomitant]
     Dosage: TEXT:800MG/WEEK
  8. DECA-DURABOLIN [Concomitant]
     Dosage: TEXT:600MG/WEEK
  9. FLUOXYMESTERONE [Concomitant]
     Dosage: DAILY DOSE:20MG
  10. INSULIN [Concomitant]
     Dosage: DAILY DOSE:8I.U.
  11. LIOTHYRONINE SODIUM [Concomitant]
     Dosage: TEXT:50-200MCG/DAY
  12. MESTEROLONE [Concomitant]
     Dosage: DAILY DOSE:100MG
  13. OXYMETHOLONE [Concomitant]
     Dosage: DAILY DOSE:100MG
  14. SPIRONOLACTONE [Concomitant]
     Dosage: DAILY DOSE:100MG
  15. STANOZOLOL [Concomitant]
     Dosage: DAILY DOSE:10MG
  16. TESTOSTERONE ENANTHATE ^THERAMEX^ [Concomitant]
     Dosage: TEXT:1000MG/WEEK
  17. TESTOSTERONE ENANTHATE ^THERAMEX^ [Concomitant]
     Dosage: TEXT:800MG/WEEK
  18. TESTOSTERONE PROPIONATE [Concomitant]
     Dosage: TEXT:1000MG/WEEK
  19. METANDROSTENOLONE [Concomitant]
     Dosage: DAILY DOSE:100MG
  20. TRENBOLONE [Concomitant]
     Dosage: DAILY DOSE:100MG

REACTIONS (18)
  - ABDOMINAL PAIN UPPER [None]
  - ACIDOSIS [None]
  - BLOOD GLUCOSE DECREASED [None]
  - DEHYDRATION [None]
  - HEPATIC FUNCTION ABNORMAL [None]
  - HEPATITIS [None]
  - HEPATITIS ACUTE [None]
  - HYPERGLYCAEMIA [None]
  - HYPERPHAGIA [None]
  - INTENTIONAL DRUG MISUSE [None]
  - KIDNEY ENLARGEMENT [None]
  - POLYDIPSIA [None]
  - POLYURIA [None]
  - RENAL FAILURE ACUTE [None]
  - SECONDARY HYPOGONADISM [None]
  - SELF-MEDICATION [None]
  - TYPE 2 DIABETES MELLITUS [None]
  - WEIGHT DECREASED [None]
